FAERS Safety Report 24549757 (Version 2)
Quarter: 2024Q4

REPORT INFORMATION
  Report Type: Spontaneous
  Country: US (occurrence: US)
  Receive Date: 20241025
  Receipt Date: 20241202
  Transmission Date: 20250115
  Serious: No
  Sender: NOVARTIS
  Company Number: US-002147023-NVSC2024US208017

PATIENT
  Sex: Male

DRUGS (4)
  1. TAFINLAR [Suspect]
     Active Substance: DABRAFENIB MESYLATE
     Indication: Craniopharyngioma malignant
     Dosage: 150 MG, Q12H
     Route: 048
     Dates: start: 202409
  2. TAFINLAR [Suspect]
     Active Substance: DABRAFENIB MESYLATE
     Dosage: 100 MG, Q12H
     Route: 065
  3. MEKINIST [Suspect]
     Active Substance: TRAMETINIB DIMETHYL SULFOXIDE
     Indication: Craniopharyngioma malignant
     Dosage: 2 MG, QD
     Route: 048
     Dates: start: 202409
  4. MEKINIST [Suspect]
     Active Substance: TRAMETINIB DIMETHYL SULFOXIDE
     Dosage: 1.5 MG
     Route: 065

REACTIONS (5)
  - Fatigue [Unknown]
  - Nausea [Unknown]
  - Arthralgia [Unknown]
  - Swelling [Unknown]
  - Off label use [Unknown]
